FAERS Safety Report 18139912 (Version 1)
Quarter: 2020Q3

REPORT INFORMATION
  Report Type: Spontaneous
  Country: US (occurrence: US)
  Receive Date: 20200812
  Receipt Date: 20200812
  Transmission Date: 20201103
  Serious: Yes (Hospitalization)
  Sender: FDA-Public Use
  Company Number: None

PATIENT
  Age: 69 Year
  Sex: Female

DRUGS (11)
  1. CONTOUR NEXT SOL LEVEL 1 [Concomitant]
     Dates: start: 20200811
  2. LANTUS SOLOS INJ 100/ML [Concomitant]
     Dates: start: 20200807
  3. IBUPROFEN TAB 600MG [Concomitant]
     Dates: start: 20200722
  4. MICROLET MIS LANCETS [Concomitant]
     Dates: start: 20200811
  5. NOVOLOG INJ FLEXPEN [Concomitant]
     Dates: start: 20200811
  6. CONTOUR TES NEXT [Concomitant]
     Dates: start: 20200806
  7. CARVEDILOL TAB 6.25MG [Concomitant]
     Active Substance: CARVEDILOL
     Dates: start: 20200708
  8. CONTOUR NEXT KIT ONE [Concomitant]
     Dates: start: 20200806
  9. BD PEN NEEDL MIS 32GX4MM [Concomitant]
     Dates: start: 20200807
  10. OMEPRAZOLE CAP 40MG [Concomitant]
     Active Substance: OMEPRAZOLE
     Dates: start: 20200619
  11. PIQRAY [Suspect]
     Active Substance: ALPELISIB
     Indication: BREAST CANCER FEMALE
     Route: 048
     Dates: start: 20200715

REACTIONS (4)
  - Illness [None]
  - Diabetic coma [None]
  - Diabetes mellitus [None]
  - Blindness transient [None]

NARRATIVE: CASE EVENT DATE: 20200803
